FAERS Safety Report 8235956-2 (Version None)
Quarter: 2012Q1

REPORT INFORMATION
  Report Type: 
  Country: None (occurrence: None)
  Receive Date: 20120326
  Receipt Date: 20120316
  Transmission Date: 20120608
  Serious: Yes (Other)
  Sender: FDA-Public Use
  Company Number: AU-ASTRAZENECA-2012SE17952

PATIENT
  Age: 73 Year
  Sex: Female

DRUGS (2)
  1. AROMAZIN [Concomitant]
  2. ARIMIDEX [Suspect]
     Route: 048
     Dates: start: 20090501, end: 20110801

REACTIONS (1)
  - CONTRALATERAL BREAST CANCER [None]
